FAERS Safety Report 8457929-7 (Version None)
Quarter: 2012Q2

REPORT INFORMATION
  Report Type: 
  Country: None (occurrence: None)
  Receive Date: 20120622
  Receipt Date: 20120614
  Transmission Date: 20120825
  Serious: Yes (Other)
  Sender: FDA-Public Use
  Company Number: CA-JNJFOC-20120604398

PATIENT
  Age: 49 Year
  Sex: Female

DRUGS (2)
  1. CETIRIZINE HCL [Suspect]
     Indication: MULTIPLE ALLERGIES
     Dosage: 1/2 TABLET PER DAY
     Route: 048
     Dates: end: 20120613
  2. CETIRIZINE HCL [Suspect]
     Route: 048

REACTIONS (3)
  - PRODUCT CONTAMINATION [None]
  - ABDOMINAL PAIN UPPER [None]
  - WRONG TECHNIQUE IN DRUG USAGE PROCESS [None]
